FAERS Safety Report 16862801 (Version 1)
Quarter: 2019Q3

REPORT INFORMATION
  Report Type: Spontaneous
  Country: CN (occurrence: CN)
  Receive Date: 20190927
  Receipt Date: 20190927
  Transmission Date: 20191005
  Serious: Yes (Other)
  Sender: FDA-Public Use
  Company Number: CN-PFIZER INC-2019410804

PATIENT
  Age: 62 Year
  Sex: Male
  Weight: 51 kg

DRUGS (2)
  1. CELEBREX [Suspect]
     Active Substance: CELECOXIB
     Indication: LUMBAR SPINAL STENOSIS
     Dosage: 0.2 G, 1X/DAY
     Route: 048
     Dates: start: 20190905, end: 20190905
  2. CELEBREX [Suspect]
     Active Substance: CELECOXIB
     Indication: BACK PAIN
     Dosage: 0.2 G, 2X/DAY
     Route: 048
     Dates: start: 20190906, end: 20190909

REACTIONS (8)
  - Hypokalaemia [Recovering/Resolving]
  - Hypochloraemia [Recovering/Resolving]
  - Decreased appetite [Recovering/Resolving]
  - Abdominal distension [Recovering/Resolving]
  - Nausea [Recovering/Resolving]
  - Hepatic enzyme increased [Recovering/Resolving]
  - Hyponatraemia [Recovering/Resolving]
  - Drug-induced liver injury [Recovering/Resolving]

NARRATIVE: CASE EVENT DATE: 201909
